FAERS Safety Report 8096823-0 (Version None)
Quarter: 2012Q1

REPORT INFORMATION
  Report Type: 
  Country: None (occurrence: None)
  Receive Date: 20120129
  Receipt Date: 20111203
  Transmission Date: 20120608
  Serious: No
  Sender: FDA-Public Use
  Company Number: US-ABBOTT-11P-163-0880535-00

PATIENT
  Sex: Female

DRUGS (2)
  1. HUMIRA [Suspect]
     Indication: RHEUMATOID ARTHRITIS
     Dates: start: 20060101, end: 20070101
  2. HUMIRA [Suspect]
     Dates: start: 20110601

REACTIONS (3)
  - INJECTION SITE PAIN [None]
  - HYPERSENSITIVITY [None]
  - INJECTION SITE DISCOMFORT [None]
